FAERS Safety Report 8834825 (Version 1)
Quarter: 2012Q4

REPORT INFORMATION
  Report Type: Spontaneous
  Country: IR (occurrence: None)
  Receive Date: 20121009
  Receipt Date: 20121009
  Transmission Date: 20130627
  Serious: Yes (Hospitalization)
  Sender: FDA-Public Use
  Company Number: NSR_00672_2012

PATIENT
  Age: 48 Year
  Sex: Male

DRUGS (1)
  1. BACLOFEN [Suspect]
     Indication: BACK PAIN

REACTIONS (10)
  - Depressed level of consciousness [None]
  - Toxicity to various agents [None]
  - Disorientation [None]
  - Confusional state [None]
  - Hypertension [None]
  - Azotaemia [None]
  - Anaemia [None]
  - Toxic encephalopathy [None]
  - Overdose [None]
  - Drug half-life increased [None]
